FAERS Safety Report 21615417 (Version 1)
Quarter: 2022Q4

REPORT INFORMATION
  Report Type: Spontaneous
  Country: DE (occurrence: DE)
  Receive Date: 20221118
  Receipt Date: 20221118
  Transmission Date: 20230113
  Serious: Yes (Life-Threatening, Hospitalization)
  Sender: FDA-Public Use
  Company Number: DE-ADRED-08352-01

PATIENT
  Age: 60 Year
  Sex: Male
  Weight: 98 kg

DRUGS (2)
  1. VALSARTAN [Suspect]
     Active Substance: VALSARTAN
     Indication: Product used for unknown indication
     Dosage: 40 MG, NK, TABLET
     Route: 048
  2. ASPIRIN [Suspect]
     Active Substance: ASPIRIN
     Indication: Product used for unknown indication
     Dosage: 100 MG, NK, TABLET
     Route: 048

REACTIONS (8)
  - Multiple organ dysfunction syndrome [Unknown]
  - Vomiting [Unknown]
  - Septic shock [Unknown]
  - Shock haemorrhagic [Unknown]
  - General physical health deterioration [Unknown]
  - Renal failure [Unknown]
  - Presyncope [Unknown]
  - Syncope [Unknown]
